FAERS Safety Report 14362456 (Version 1)
Quarter: 2018Q1

REPORT INFORMATION
  Report Type: Report from Study
  Country: BE (occurrence: BE)
  Receive Date: 20180108
  Receipt Date: 20180108
  Transmission Date: 20180509
  Serious: Yes (Hospitalization, Other)
  Sender: FDA-Public Use
  Company Number: BE-TEVA-2018-BE-844026

PATIENT
  Age: 79 Year
  Sex: Female
  Weight: 63.2 kg

DRUGS (3)
  1. CARBOPLATIN. [Suspect]
     Active Substance: CARBOPLATIN
     Indication: OVARIAN CANCER
     Dosage: 6 AUC (AREA UNDER CURVE).
     Route: 042
     Dates: start: 20170713
  2. AVASTIN [Suspect]
     Active Substance: BEVACIZUMAB
     Indication: OVARIAN CANCER
     Route: 042
     Dates: start: 20170713
  3. PACLITAXEL. [Suspect]
     Active Substance: PACLITAXEL
     Indication: OVARIAN CANCER
     Dosage: 290.43 MG/M2
     Route: 042
     Dates: start: 20170713

REACTIONS (8)
  - Neuropathy peripheral [Not Recovered/Not Resolved]
  - Back pain [Recovered/Resolved]
  - Balance disorder [Recovering/Resolving]
  - Pyrexia [Not Recovered/Not Resolved]
  - Macular degeneration [Not Recovered/Not Resolved]
  - Fatigue [Recovered/Resolved]
  - Constipation [Recovered/Resolved]
  - Productive cough [Not Recovered/Not Resolved]

NARRATIVE: CASE EVENT DATE: 20170815
